FAERS Safety Report 9257984 (Version 1)
Quarter: 2013Q2

REPORT INFORMATION
  Report Type: Spontaneous
  Country: CN (occurrence: CN)
  Receive Date: 20130426
  Receipt Date: 20130426
  Transmission Date: 20140414
  Serious: Yes (Other)
  Sender: FDA-Public Use
  Company Number: CN-JNJFOC-20130409998

PATIENT
  Sex: 0

DRUGS (3)
  1. ITRACONAZOLE [Suspect]
     Indication: SYSTEMIC MYCOSIS
     Route: 042
  2. ITRACONAZOLE [Suspect]
     Indication: SYSTEMIC MYCOSIS
     Dosage: LOADING DOSE OF 400 MG/DAY FOR 2 DAYS FOLLOWED BY 200 MG/DAY
     Route: 042
  3. ITRACONAZOLE [Suspect]
     Indication: SYSTEMIC MYCOSIS
     Route: 048

REACTIONS (4)
  - Systemic mycosis [Unknown]
  - Drug intolerance [Unknown]
  - Adverse drug reaction [Unknown]
  - Off label use [Unknown]
